FAERS Safety Report 8253183-X (Version None)
Quarter: 2012Q2

REPORT INFORMATION
  Report Type: 
  Country: None (occurrence: None)
  Receive Date: 20120402
  Receipt Date: 20120307
  Transmission Date: 20120825
  Serious: No
  Sender: FDA-Public Use
  Company Number: US-AMGEN-USASP2012014955

PATIENT
  Age: 66 Year
  Sex: Female

DRUGS (2)
  1. ENBREL [Suspect]
     Indication: ANKYLOSING SPONDYLITIS
     Dosage: 50 MG, QWK
     Dates: start: 20120215
  2. SULFASALAZINE [Concomitant]
     Dosage: UNK
     Dates: start: 20120201

REACTIONS (3)
  - ERYTHEMA [None]
  - RASH [None]
  - PRURITUS [None]
